FAERS Safety Report 8531011-2 (Version None)
Quarter: 2012Q3

REPORT INFORMATION
  Report Type: 
  Country: None (occurrence: None)
  Receive Date: 20120723
  Receipt Date: 20120719
  Transmission Date: 20120928
  Serious: Yes (Disabling)
  Sender: FDA-Public Use
  Company Number: TN-ROCHE-1090480

PATIENT
  Sex: Male
  Weight: 96 kg

DRUGS (5)
  1. VINCRISTINE [Concomitant]
     Indication: NON-HODGKIN'S LYMPHOMA
     Route: 042
  2. DOXORUBICIN HCL [Concomitant]
     Indication: NON-HODGKIN'S LYMPHOMA
     Route: 042
  3. CYCLOPHOSPHAMIDE [Concomitant]
     Indication: NON-HODGKIN'S LYMPHOMA
     Route: 042
  4. MABTHERA [Suspect]
     Indication: NON-HODGKIN'S LYMPHOMA
     Route: 042
     Dates: start: 20120314, end: 20120627
  5. PREDNISONE [Concomitant]
     Indication: NON-HODGKIN'S LYMPHOMA
     Route: 042

REACTIONS (1)
  - PULMONARY FIBROSIS [None]
